FAERS Safety Report 6106816-8 (Version None)
Quarter: 2009Q1

REPORT INFORMATION
  Report Type: 
  Country: None (occurrence: None)
  Receive Date: 20090304
  Receipt Date: 20090227
  Transmission Date: 20090719
  Serious: Yes (Death)
  Sender: FDA-Public Use
  Company Number: 2008SP007605

PATIENT
  Age: 50 Year
  Sex: Male
  Weight: 70 kg

DRUGS (6)
  1. TEMODAL [Suspect]
     Indication: OLIGODENDROGLIOMA
     Dosage: 100 MG; PO
     Route: 048
  2. DECADRON [Concomitant]
  3. STEMETIL [Concomitant]
  4. TEGRETOL [Concomitant]
  5. ONDANSETRON [Concomitant]
  6. CELEXA [Concomitant]

REACTIONS (2)
  - DEEP VEIN THROMBOSIS [None]
  - PULMONARY EMBOLISM [None]
